FAERS Safety Report 21624125 (Version 1)
Quarter: 2022Q4

REPORT INFORMATION
  Report Type: Spontaneous
  Country: US (occurrence: US)
  Receive Date: 20221121
  Receipt Date: 20221121
  Transmission Date: 20230113
  Serious: No
  Sender: FDA-Public Use
  Company Number: US-Blueprint Medicines Corporation-591

PATIENT
  Sex: Female

DRUGS (2)
  1. AYVAKIT [Suspect]
     Active Substance: AVAPRITINIB
     Indication: Malignant mast cell neoplasm
     Route: 065
     Dates: start: 20220927
  2. AYVAKIT [Suspect]
     Active Substance: AVAPRITINIB
     Route: 065

REACTIONS (7)
  - White blood cell count decreased [Unknown]
  - Pre-existing condition improved [Unknown]
  - Fatigue [Unknown]
  - Diarrhoea [Unknown]
  - Swelling of eyelid [Unknown]
  - Product dose omission issue [Unknown]
  - Off label use [Unknown]
